FAERS Safety Report 8423268-3 (Version None)
Quarter: 2012Q2

REPORT INFORMATION
  Report Type: 
  Country: None (occurrence: None)
  Receive Date: 20120608
  Receipt Date: 20120524
  Transmission Date: 20120825
  Serious: No
  Sender: FDA-Public Use
  Company Number: US-ASTRAZENECA-2012SE19965

PATIENT
  Age: 73 Year
  Sex: Female

DRUGS (1)
  1. NEXIUM [Suspect]
     Route: 048

REACTIONS (6)
  - CARDIAC DISORDER [None]
  - COLITIS [None]
  - BLADDER DISORDER [None]
  - FUNCTIONAL GASTROINTESTINAL DISORDER [None]
  - STRESS [None]
  - MALAISE [None]
